FAERS Safety Report 10362480 (Version 1)
Quarter: 2014Q3

REPORT INFORMATION
  Report Type: Spontaneous
  Country: US (occurrence: None)
  Receive Date: 20140725
  Receipt Date: 20140725
  Transmission Date: 20150326
  Serious: Yes (Other)
  Sender: FDA-Public Use
  Company Number: 2010S1000525

PATIENT
  Age: 42 Year
  Sex: Male

DRUGS (1)
  1. PHOSPHO-SODA [Suspect]
     Active Substance: SODIUM PHOSPHATE, DIBASIC\SODIUM PHOSPHATE, MONOBASIC
     Indication: COLONOSCOPY
     Route: 048
     Dates: start: 200005

REACTIONS (14)
  - Dialysis [None]
  - Blood pressure increased [None]
  - Muscular weakness [None]
  - Hyperparathyroidism [None]
  - Nephrogenic anaemia [None]
  - Road traffic accident [None]
  - Weight decreased [None]
  - Renal transplant [None]
  - Renal failure chronic [None]
  - Carpal tunnel syndrome [None]
  - Contusion [None]
  - Pain in extremity [None]
  - Dysuria [None]
  - Neuropathy peripheral [None]
